FAERS Safety Report 4451214-6 (Version None)
Quarter: 2004Q3

REPORT INFORMATION
  Report Type: 
  Country: None (occurrence: None)
  Receive Date: 20040914
  Receipt Date: 20040827
  Transmission Date: 20050211
  Serious: Yes (Other)
  Sender: FDA-Public Use
  Company Number: B0336421A

PATIENT
  Age: 52 Year
  Sex: Female

DRUGS (4)
  1. PAXIL [Suspect]
     Indication: ANXIETY
     Dosage: 10 MG PER DAY ORAL
     Route: 048
     Dates: start: 20030301, end: 20030326
  2. BUSPIRONE HCL [Suspect]
     Indication: ANXIETY
     Dosage: 10 MG FOUR TIMES PER DAY ORAL
     Route: 048
     Dates: start: 19900101, end: 20030421
  3. PAPAVERINE [Concomitant]
  4. UBIDECARENONE [Concomitant]

REACTIONS (20)
  - ABDOMINAL PAIN [None]
  - BURNING SENSATION [None]
  - C-REACTIVE PROTEIN INCREASED [None]
  - CHEST DISCOMFORT [None]
  - CHILLS [None]
  - COUGH [None]
  - DRUG INTERACTION [None]
  - ECCHYMOSIS [None]
  - ERYTHEMA NODOSUM [None]
  - HYPERHIDROSIS [None]
  - HYPERREFLEXIA [None]
  - MUSCLE CRAMP [None]
  - MUSCLE TWITCHING [None]
  - NAUSEA [None]
  - PALPITATIONS [None]
  - PYREXIA [None]
  - RASH [None]
  - SEROTONIN SYNDROME [None]
  - TACHYCARDIA [None]
  - TREMOR [None]
